FAERS Safety Report 14953850 (Version 1)
Quarter: 2018Q2

REPORT INFORMATION
  Report Type: Spontaneous
  Country: JP (occurrence: JP)
  Receive Date: 20180530
  Receipt Date: 20180530
  Transmission Date: 20180711
  Serious: Yes (Other)
  Sender: FDA-Public Use
  Company Number: JP-MYLANLABS-2018M1036147

PATIENT
  Age: 79 Year
  Sex: Male

DRUGS (2)
  1. FOLINIC ACID [Suspect]
     Active Substance: LEUCOVORIN
     Indication: ADENOCARCINOMA OF COLON
     Route: 065
  2. TEGAFUR/URACIL [Suspect]
     Active Substance: TEGAFUR\URACIL
     Indication: ADENOCARCINOMA OF COLON
     Route: 065

REACTIONS (1)
  - Pancytopenia [Unknown]
